FAERS Safety Report 6182369-3 (Version None)
Quarter: 2009Q2

REPORT INFORMATION
  Report Type: 
  Country: None (occurrence: None)
  Receive Date: 20090507
  Receipt Date: 20090427
  Transmission Date: 20091009
  Serious: Yes (Death)
  Sender: FDA-Public Use
  Company Number: US-JNJFOC-20090401750

PATIENT
  Sex: Female

DRUGS (2)
  1. REMICADE [Suspect]
     Indication: RHEUMATOID ARTHRITIS
     Dosage: ABOUT 4 INFUSIONS TOTAL
     Route: 042
  2. ENBREL [Suspect]
     Indication: RHEUMATOID ARTHRITIS
     Route: 050

REACTIONS (2)
  - BRONCHOPULMONARY ASPERGILLOSIS [None]
  - DEEP VEIN THROMBOSIS [None]
